FAERS Safety Report 8974935 (Version 3)
Quarter: 2013Q1

REPORT INFORMATION
  Report Type: Spontaneous
  Country: TW (occurrence: TW)
  Receive Date: 20121219
  Receipt Date: 20130326
  Transmission Date: 20140127
  Serious: Yes (Hospitalization)
  Sender: FDA-Public Use
  Company Number: TW-JNJFOC-20121205495

PATIENT
  Age: 61 Year
  Sex: Female

DRUGS (5)
  1. SIMPONI [Suspect]
     Indication: RHEUMATOID ARTHRITIS
     Route: 058
     Dates: start: 20130103
  2. SIMPONI [Suspect]
     Indication: RHEUMATOID ARTHRITIS
     Route: 058
     Dates: start: 20121109
  3. METHOTREXATE [Suspect]
     Indication: PRODUCT USED FOR UNKNOWN INDICATION
     Dosage: 2 TAB TIW
     Route: 065
  4. PLAQUENIL [Concomitant]
     Dosage: 1 TAB TWICE A DAY
     Route: 065
  5. PREDNISOLONE [Concomitant]
     Dosage: VPP 1 TAB TWICE A DAY
     Route: 065

REACTIONS (9)
  - Weight decreased [Unknown]
  - Spinal compression fracture [Unknown]
  - Pneumonia pseudomonas aeruginosa [Recovered/Resolved]
  - Autoimmune haemolytic anaemia [Unknown]
  - Hypoalbuminaemia [Unknown]
  - Cholelithiasis [Unknown]
  - Uterine leiomyoma [Unknown]
  - Lumbar spinal stenosis [Unknown]
  - Pancytopenia [Unknown]
